FAERS Safety Report 18028481 (Version 1)
Quarter: 2020Q3

REPORT INFORMATION
  Report Type: Spontaneous
  Country: BE (occurrence: BE)
  Receive Date: 20200715
  Receipt Date: 20200715
  Transmission Date: 20201103
  Serious: Yes (Hospitalization)
  Sender: FDA-Public Use
  Company Number: BE-PFIZER INC-2020267653

PATIENT
  Age: 77 Year
  Sex: Male
  Weight: 64.3 kg

DRUGS (14)
  1. UNI DIAMICRON [Concomitant]
     Active Substance: GLICLAZIDE
     Dosage: UNK
     Route: 065
     Dates: start: 20000701
  2. LORAZEPAM. [Concomitant]
     Active Substance: LORAZEPAM
     Dosage: UNK
     Route: 065
     Dates: start: 19910801
  3. GEMCITABINE HYDROCHLORIDE. [Suspect]
     Active Substance: GEMCITABINE HYDROCHLORIDE
     Indication: PANCREATIC CARCINOMA METASTATIC
     Dosage: 1819 MG, WEEKLY
     Route: 041
     Dates: start: 20180904, end: 20181212
  4. ABRAXANE [Suspect]
     Active Substance: PACLITAXEL
     Indication: PANCREATIC CARCINOMA METASTATIC
     Dosage: 238 MG, WEEKLY
     Route: 041
     Dates: start: 20180904, end: 20181114
  5. SIMVASTATIN. [Concomitant]
     Active Substance: SIMVASTATIN
     Dosage: UNK
     Route: 065
     Dates: start: 20180803
  6. AMLOR [Concomitant]
     Active Substance: AMLODIPINE BESYLATE
     Dosage: UNK
     Route: 065
     Dates: start: 20130701
  7. CETAVLEX [CHLORHEXIDINE GLUCONATE] [Concomitant]
     Dosage: UNK
     Route: 065
     Dates: start: 20181012
  8. NAPABUCASIN [Concomitant]
     Active Substance: NAPABUCASIN
     Dosage: 160 MG, 1X/DAY
     Route: 048
     Dates: end: 20181212
  9. NAPABUCASIN [Concomitant]
     Active Substance: NAPABUCASIN
     Indication: PANCREATIC CARCINOMA METASTATIC
     Dosage: 480 MG, 1X/DAY
     Route: 048
     Dates: start: 20180830
  10. TENORMIN [Concomitant]
     Active Substance: ATENOLOL
     Dosage: UNK
     Route: 065
     Dates: start: 20180827
  11. GLUCOPHAGE [Concomitant]
     Active Substance: METFORMIN HYDROCHLORIDE
     Dosage: UNK
     Route: 065
     Dates: start: 20000701
  12. TEVETEN [EPROSARTAN MESILATE] [Concomitant]
     Dosage: UNK
     Route: 065
     Dates: start: 20180803
  13. XARELTO [Concomitant]
     Active Substance: RIVAROXABAN
     Dosage: UNK
     Route: 065
     Dates: start: 20160701
  14. RECTOGESIC [GLYCERYL TRINITRATE] [Concomitant]
     Active Substance: NITROGLYCERIN
     Dosage: UNK
     Route: 065
     Dates: start: 20181012

REACTIONS (1)
  - General physical health deterioration [Recovered/Resolved]

NARRATIVE: CASE EVENT DATE: 20181219
